FAERS Safety Report 10225103 (Version 2)
Quarter: 2014Q2

REPORT INFORMATION
  Report Type: Spontaneous
  Country: US (occurrence: US)
  Receive Date: 20140609
  Receipt Date: 20140626
  Transmission Date: 20141212
  Serious: Yes (Death, Other)
  Sender: FDA-Public Use
  Company Number: US-BAYER-2014-084109

PATIENT
  Age: 37 Year
  Sex: Female

DRUGS (7)
  1. ACETYLSALICYLIC ACID({=100 MG) [Suspect]
     Indication: PERIPARTUM CARDIOMYOPATHY
  2. METHYLDOPA [Concomitant]
     Indication: HYPERTENSION
     Dosage: DAILY DOSE 500 MG
     Route: 048
  3. METHYLDOPA [Concomitant]
     Indication: GESTATIONAL HYPERTENSION
  4. FUROSEMIDE [Concomitant]
  5. METOPROLOL [Concomitant]
  6. CLOPIDOGREL [Concomitant]
  7. HYDROMORPHONE [Concomitant]

REACTIONS (4)
  - Premature delivery [None]
  - Foetal distress syndrome [None]
  - Cardiac arrest [Fatal]
  - Exposure during pregnancy [None]
